FAERS Safety Report 13108837 (Version 1)
Quarter: 2017Q1

REPORT INFORMATION
  Report Type: Spontaneous
  Country: GB (occurrence: GB)
  Receive Date: 20170112
  Receipt Date: 20170112
  Transmission Date: 20170428
  Serious: Yes (Other)
  Sender: FDA-Public Use
  Company Number: GB-GLAXOSMITHKLINE-GB2017000992

PATIENT
  Age: 59 Year
  Sex: Female
  Weight: 83 kg

DRUGS (4)
  1. PROGUANIL HYDROCHLORIDE. [Suspect]
     Active Substance: PROGUANIL HYDROCHLORIDE
     Indication: MALARIA PROPHYLAXIS
     Dosage: 1 DF, QD
     Route: 065
     Dates: start: 20161105, end: 20161111
  2. HEPATITIS A VACCINE [Concomitant]
     Active Substance: HEPATITIS A VIRUS STRAIN HM175 ANTIGEN (FORMALDEHYDE INACTIVATED)
     Indication: HEPATITIS A IMMUNISATION
     Route: 065
     Dates: start: 20161003, end: 20161003
  3. ATOVAQUONE. [Suspect]
     Active Substance: ATOVAQUONE
     Indication: MALARIA PROPHYLAXIS
     Dosage: 1 DF, QD
     Route: 065
     Dates: start: 20161105, end: 20161111
  4. CLOSTRIDIUM TETANI VACCINE [Concomitant]
     Indication: TETANUS IMMUNISATION
     Dosage: UNK
     Route: 065
     Dates: start: 20161003, end: 20161003

REACTIONS (4)
  - Diarrhoea [Recovering/Resolving]
  - Syncope [Recovering/Resolving]
  - Cough [Recovering/Resolving]
  - Malaise [Recovering/Resolving]

NARRATIVE: CASE EVENT DATE: 20161107
